FAERS Safety Report 8383812-1 (Version None)
Quarter: 2012Q2

REPORT INFORMATION
  Report Type: 
  Country: None (occurrence: None)
  Receive Date: 20120524
  Receipt Date: 20120314
  Transmission Date: 20120825
  Serious: Yes (Hospitalization, Other)
  Sender: FDA-Public Use
  Company Number: US-ROCHE-1049030

PATIENT
  Sex: Male

DRUGS (27)
  1. PREDNISONE [Concomitant]
     Route: 048
     Dates: start: 20110513
  2. CELLCEPT [Suspect]
     Indication: PRODUCT USED FOR UNKNOWN INDICATION
  3. POTASSIUM CHLORIDE [Concomitant]
     Route: 048
     Dates: start: 20120222
  4. ACETAMINOPHEN [Concomitant]
     Route: 048
     Dates: start: 20120118
  5. COUMADIN [Concomitant]
     Route: 048
  6. LINEZOLID [Concomitant]
     Dosage: LAST DOSE ON 19/MAR/2012
     Route: 048
     Dates: start: 20120312
  7. SIROLIMUS [Suspect]
     Indication: PRODUCT USED FOR UNKNOWN INDICATION
     Route: 048
  8. CIPROFLOXACIN [Concomitant]
     Dosage: LAST DOSE ON 19/MAR/2012
     Route: 048
     Dates: start: 20120312
  9. CELLCEPT [Suspect]
     Route: 048
     Dates: start: 20120313
  10. SOTALOL HCL [Concomitant]
     Route: 048
  11. LASIX [Concomitant]
  12. CHLORTHALIDONE [Concomitant]
     Route: 048
     Dates: start: 20110728
  13. LANCETS [Concomitant]
  14. TACROLIMUS [Concomitant]
     Route: 048
     Dates: start: 20120313
  15. ALDACTONE [Concomitant]
  16. DILTIAZEM [Concomitant]
     Route: 048
     Dates: start: 20110727
  17. ISOSORBIDE DINITRATE [Concomitant]
     Route: 048
     Dates: start: 20110727
  18. PHENERGAN [Concomitant]
  19. PRAVACHOL [Concomitant]
     Route: 048
  20. HUMULIN R [Concomitant]
     Route: 058
  21. METRONIDAZOLE [Concomitant]
     Dosage: LAST DOSE ON 19/MAR/2012
     Route: 048
     Dates: start: 20120312
  22. GUAIFENESIN W DEXTROMETHORPHAN [Concomitant]
     Route: 048
     Dates: start: 20120221
  23. CLONIDINE [Concomitant]
     Route: 048
     Dates: start: 20111025
  24. LOPID [Concomitant]
     Route: 048
     Dates: start: 20110707
  25. ZOLOFT [Concomitant]
     Route: 048
  26. HYDRALAZINE HCL [Concomitant]
  27. FISH OIL [Concomitant]

REACTIONS (3)
  - HUMERUS FRACTURE [None]
  - RESPIRATORY FAILURE [None]
  - PNEUMONITIS [None]
